FAERS Safety Report 9090383 (Version 1)
Quarter: 2013Q1

REPORT INFORMATION
  Report Type: Spontaneous
  Country: US (occurrence: US)
  Receive Date: 20130201
  Receipt Date: 20130201
  Transmission Date: 20140127
  Serious: No
  Sender: FDA-Public Use
  Company Number: US-ABBOTT-12P-163-1020259-00

PATIENT
  Sex: 0

DRUGS (1)
  1. HUMIRA [Suspect]
     Indication: PRODUCT USED FOR UNKNOWN INDICATION

REACTIONS (12)
  - Drug ineffective [Unknown]
  - Gastrointestinal haemorrhage [Unknown]
  - Gastrointestinal inflammation [Unknown]
  - Nasopharyngitis [Unknown]
  - Sinusitis [Unknown]
  - Sinusitis [Unknown]
  - Bronchitis [Unknown]
  - Urinary tract infection [Unknown]
  - Fungal infection [Unknown]
  - Herpes zoster [Unknown]
  - Fatigue [Unknown]
  - Fatigue [Unknown]
